FAERS Safety Report 25223166 (Version 2)
Quarter: 2025Q2

REPORT INFORMATION
  Report Type: Spontaneous
  Country: JP (occurrence: JP)
  Receive Date: 20250422
  Receipt Date: 20250528
  Transmission Date: 20250717
  Serious: Yes (Disabling, Other)
  Sender: GLAXOSMITHKLINE
  Company Number: JP-GSKJP-JP2025JPN046146AA

PATIENT

DRUGS (1)
  1. DAPRODUSTAT [Suspect]
     Active Substance: DAPRODUSTAT

REACTIONS (3)
  - Choroidal neovascularisation [Not Recovered/Not Resolved]
  - Glaucoma [Not Recovered/Not Resolved]
  - Visual impairment [Unknown]
